FAERS Safety Report 9926244 (Version 1)
Quarter: 2014Q1

REPORT INFORMATION
  Report Type: Report from Study
  Country: JP (occurrence: JP)
  Receive Date: 20140226
  Receipt Date: 20140226
  Transmission Date: 20141002
  Serious: Yes (Hospitalization)
  Sender: FDA-Public Use
  Company Number: JP-ABBVIE-14P-087-1203699-00

PATIENT
  Age: 46 Year
  Sex: Female
  Weight: 56 kg

DRUGS (1)
  1. LUPRON DEPOT [Suspect]
     Indication: BREAST CANCER FEMALE
     Route: 058
     Dates: start: 20130814, end: 20130814

REACTIONS (1)
  - Organising pneumonia [Recovering/Resolving]
